FAERS Safety Report 9588744 (Version 1)
Quarter: 2013Q4

REPORT INFORMATION
  Report Type: Spontaneous
  Country: US (occurrence: US)
  Receive Date: 20131003
  Receipt Date: 20131003
  Transmission Date: 20140711
  Serious: No
  Sender: FDA-Public Use
  Company Number: US-AMGEN-USASP2012065793

PATIENT
  Age: 64 Year
  Sex: Female
  Weight: 65.76 kg

DRUGS (7)
  1. ENBREL [Suspect]
     Indication: RHEUMATOID ARTHRITIS
     Dosage: 50 MG, QWK
     Route: 058
  2. JANUVIA [Concomitant]
     Dosage: 100 MG, UNK
  3. DIOVAN HCT [Concomitant]
     Dosage: 160-25 MG
  4. METFORMIN [Concomitant]
     Dosage: 1000 MG, UNK
  5. ACTONEL [Concomitant]
     Dosage: 35 MG, UNK
  6. METOPROLOL [Concomitant]
     Dosage: 50 MG, UNK
  7. FOLIC ACID [Concomitant]

REACTIONS (1)
  - Drug ineffective [Unknown]
